FAERS Safety Report 6093799-2 (Version None)
Quarter: 2009Q1

REPORT INFORMATION
  Report Type: 
  Country: None (occurrence: None)
  Receive Date: 20090223
  Receipt Date: 20090223
  Transmission Date: 20090719
  Serious: No
  Sender: FDA-Public Use
  Company Number: None

PATIENT
  Age: 16 Year
  Sex: Male
  Weight: 58.9676 kg

DRUGS (1)
  1. MINOCIN [Suspect]
     Indication: ACNE
     Dosage: 100 MG ONE DAILY
     Dates: start: 20081101, end: 20090201

REACTIONS (5)
  - DEPERSONALISATION [None]
  - EDUCATIONAL PROBLEM [None]
  - EUPHORIC MOOD [None]
  - HUNGER [None]
  - OCULAR HYPERAEMIA [None]
